FAERS Safety Report 8363982-1 (Version None)
Quarter: 2012Q2

REPORT INFORMATION
  Report Type: 
  Country: None (occurrence: None)
  Receive Date: 20120516
  Receipt Date: 20120510
  Transmission Date: 20120825
  Serious: Yes (Death, Hospitalization, Other)
  Sender: FDA-Public Use
  Company Number: JO-PFIZER INC-2012114544

PATIENT
  Age: 40 Year
  Sex: Female

DRUGS (5)
  1. FERROUS SULFATE [Concomitant]
     Indication: HAEMOGLOBIN
     Dosage: 325 MG, THREE TIMES DAILY
  2. LAMOTRIGINE [Suspect]
     Dosage: 100 MG,DAILY
     Route: 048
  3. QUETIAPINE FUMARATE [Suspect]
     Dosage: 300 MG, DAILY
     Route: 048
  4. MIRTAZAPINE [Suspect]
     Dosage: 15 MG,DAILY
     Route: 048
  5. VENLAFAXINE HCL [Suspect]
     Dosage: 75 MG,DAILY
     Route: 048

REACTIONS (7)
  - CELLULITIS ORBITAL [None]
  - SEPTIC SHOCK [None]
  - MULTI-ORGAN FAILURE [None]
  - NEUTROPENIA [None]
  - AGRANULOCYTOSIS [None]
  - ORAL CANDIDIASIS [None]
  - LUNG INFECTION [None]
